FAERS Safety Report 22794997 (Version 3)
Quarter: 2024Q1

REPORT INFORMATION
  Report Type: Spontaneous
  Country: US (occurrence: US)
  Receive Date: 20230807
  Receipt Date: 20240212
  Transmission Date: 20240410
  Serious: No
  Sender: FDA-Public Use
  Company Number: US-DSJP-DSU-2023-132256

PATIENT
  Sex: Female

DRUGS (4)
  1. ENHERTU [Suspect]
     Active Substance: FAM-TRASTUZUMAB DERUXTECAN-NXKI
     Indication: Breast cancer metastatic
     Dosage: UNK, ONCE EVERY 3 WK
     Route: 065
  2. ENHERTU [Suspect]
     Active Substance: FAM-TRASTUZUMAB DERUXTECAN-NXKI
     Dosage: UNK, ONCE EVERY 3 WK
     Route: 065
  3. CINVANTI [Suspect]
     Active Substance: APREPITANT
     Indication: Premedication
     Dosage: UNK
     Route: 065
  4. EMEND [Suspect]
     Active Substance: APREPITANT
     Indication: Premedication
     Dosage: UNK
     Route: 065

REACTIONS (22)
  - Feeling abnormal [Unknown]
  - Paranoia [Unknown]
  - Quality of life decreased [Recovering/Resolving]
  - Toxicity to various agents [Unknown]
  - Feeling cold [Unknown]
  - Hot flush [Unknown]
  - Anxiety [Unknown]
  - Adverse drug reaction [Unknown]
  - Gastrointestinal disorder [Unknown]
  - Musculoskeletal pain [Unknown]
  - Gait disturbance [Unknown]
  - Memory impairment [Unknown]
  - Nausea [Unknown]
  - Vomiting [Unknown]
  - Affective disorder [Unknown]
  - Asthenia [Unknown]
  - Fatigue [Unknown]
  - Abdominal pain upper [Unknown]
  - Eructation [Unknown]
  - Abdominal distension [Unknown]
  - Somnolence [Unknown]
  - Bedridden [Unknown]
